FAERS Safety Report 6176837-8 (Version None)
Quarter: 2009Q2

REPORT INFORMATION
  Report Type: 
  Country: None (occurrence: None)
  Receive Date: 20090501
  Receipt Date: 20090424
  Transmission Date: 20091009
  Serious: Yes (Other)
  Sender: FDA-Public Use
  Company Number: PHEH2008US02515

PATIENT
  Sex: Male

DRUGS (11)
  1. AREDIA [Suspect]
     Dosage: 90MG
  2. ZOMETA [Suspect]
  3. HALDOL [Concomitant]
     Dosage: 0.5MG DAILY
  4. ZOLOFT [Concomitant]
     Dosage: 50MG DAILY
  5. INTERFERON [Concomitant]
  6. RADIATION [Concomitant]
  7. CHEMOTHERAPEUTICS NOS [Concomitant]
  8. COGENTIN [Concomitant]
  9. ASPIRIN [Concomitant]
  10. TOPROL-XL [Concomitant]
  11. SINEMET [Concomitant]

REACTIONS (22)
  - AMNESIA [None]
  - ANXIETY [None]
  - ASTHENIA [None]
  - BRONCHITIS [None]
  - CARDIAC DISORDER [None]
  - COGNITIVE DISORDER [None]
  - DEMENTIA WITH LEWY BODIES [None]
  - DENTOFACIAL FUNCTIONAL DISORDER [None]
  - DYSPHAGIA [None]
  - FATIGUE [None]
  - GALLBLADDER OPERATION [None]
  - HALLUCINATION, VISUAL [None]
  - INFECTION [None]
  - INJURY [None]
  - JAW DISORDER [None]
  - OLFACTORY NERVE DISORDER [None]
  - OSTEONECROSIS [None]
  - PAIN [None]
  - PARKINSON'S DISEASE [None]
  - PHYSICAL DISABILITY [None]
  - PNEUMONIA [None]
  - TREMOR [None]
